FAERS Safety Report 13302920 (Version 1)
Quarter: 2017Q1

REPORT INFORMATION
  Report Type: Spontaneous
  Country: FR (occurrence: FR)
  Receive Date: 20170307
  Receipt Date: 20170307
  Transmission Date: 20170428
  Serious: Yes (Other)
  Sender: FDA-Public Use
  Company Number: FR-ELI_LILLY_AND_COMPANY-FR201702009615

PATIENT
  Age: 71 Year
  Sex: Male

DRUGS (2)
  1. CISPLATINE [Suspect]
     Active Substance: CISPLATIN
     Indication: LUNG ADENOCARCINOMA
     Dosage: 148 MG, CYCLICAL
     Route: 042
     Dates: start: 20161008
  2. ALIMTA [Suspect]
     Active Substance: PEMETREXED DISODIUM
     Indication: LUNG ADENOCARCINOMA
     Dosage: 990 MG, CYCLICAL
     Route: 042
     Dates: start: 20161008

REACTIONS (2)
  - Hypoacusis [Unknown]
  - Renal failure [Unknown]

NARRATIVE: CASE EVENT DATE: 201610
